FAERS Safety Report 9209263 (Version 1)
Quarter: 2013Q2

REPORT INFORMATION
  Report Type: Spontaneous
  Country: DE (occurrence: DE)
  Receive Date: 20130404
  Receipt Date: 20130404
  Transmission Date: 20140414
  Serious: Yes (Hospitalization)
  Sender: FDA-Public Use
  Company Number: DE-AMGEN-DEUSP2013004853

PATIENT
  Age: 52 Year
  Sex: Male

DRUGS (1)
  1. ENBREL [Suspect]
     Indication: PSORIASIS
     Dosage: 50 MG, 1X WEEKLY
     Dates: start: 20101202

REACTIONS (4)
  - Flushing [Recovered/Resolved]
  - Sleep disorder [Unknown]
  - Gastrointestinal disorder [Unknown]
  - Anxiety [Unknown]
